FAERS Safety Report 19839016 (Version 1)
Quarter: 2021Q3

REPORT INFORMATION
  Report Type: Spontaneous
  Country: CA (occurrence: CA)
  Receive Date: 20210915
  Receipt Date: 20210915
  Transmission Date: 20211014
  Serious: Yes (Hospitalization)
  Sender: FDA-Public Use
  Company Number: CA-ROCHE-2905291

PATIENT
  Sex: Female
  Weight: 69.46 kg

DRUGS (2)
  1. SODIUM CHLORIDE IV [Concomitant]
     Active Substance: SODIUM CHLORIDE
  2. OCREVUS [Suspect]
     Active Substance: OCRELIZUMAB
     Indication: MULTIPLE SCLEROSIS
     Route: 042

REACTIONS (2)
  - Infusion related reaction [Unknown]
  - Fall [Unknown]
